FAERS Safety Report 9074870 (Version 1)
Quarter: 2013Q1

REPORT INFORMATION
  Report Type: Report from Study
  Country: US (occurrence: US)
  Receive Date: 20130129
  Receipt Date: 20130129
  Transmission Date: 20140127
  Serious: No
  Sender: FDA-Public Use
  Company Number: US-ABBOTT-12P-163-0943697-00

PATIENT
  Age: 39 None
  Sex: Female
  Weight: 158.9 kg

DRUGS (10)
  1. HUMIRA 40 MG/0.8 ML PEN [Suspect]
     Indication: PSORIATIC ARTHROPATHY
     Dates: start: 201109
  2. HUMIRA 40 MG/0.8 ML PEN [Suspect]
     Indication: RHEUMATOID ARTHRITIS
  3. METFORMIN [Concomitant]
     Indication: DIABETES MELLITUS
     Dates: end: 201203
  4. METFORMIN [Concomitant]
     Dates: start: 201203
  5. ENALAPRIL [Concomitant]
     Indication: PRODUCT USED FOR UNKNOWN INDICATION
  6. MOBIC [Concomitant]
     Indication: RHEUMATOID ARTHRITIS
  7. GABAPENTIN [Concomitant]
     Indication: RHEUMATOID ARTHRITIS
  8. OMEPRAZOLE [Concomitant]
     Indication: GASTRIC DISORDER
  9. SKELAXIN [Concomitant]
     Indication: RHEUMATOID ARTHRITIS
  10. HYDROCODONE/APAP [Concomitant]
     Indication: RHEUMATOID ARTHRITIS

REACTIONS (8)
  - Mass [Not Recovered/Not Resolved]
  - Furuncle [Not Recovered/Not Resolved]
  - Glycosylated haemoglobin increased [Not Recovered/Not Resolved]
  - Furuncle [Recovered/Resolved]
  - Recurring skin boils [Not Recovered/Not Resolved]
  - Vaginal polyp [Not Recovered/Not Resolved]
  - Furuncle [Not Recovered/Not Resolved]
  - Abscess drainage [Not Recovered/Not Resolved]
